FAERS Safety Report 9853132 (Version 2)
Quarter: 2014Q1

REPORT INFORMATION
  Report Type: Spontaneous
  Country: US (occurrence: US)
  Receive Date: 20140129
  Receipt Date: 20140129
  Transmission Date: 20141002
  Serious: No
  Sender: FDA-Public Use
  Company Number: US-BAXTER-2014BAX001003

PATIENT
  Age: 62 Year
  Sex: Male

DRUGS (7)
  1. DIANEAL LOW CALCIUM [Suspect]
     Indication: RENAL FAILURE CHRONIC
     Route: 033
     Dates: start: 2009
  2. DIANEAL LOW CALCIUM [Suspect]
     Route: 033
     Dates: start: 2009
  3. DIANEAL LOW CALCIUM [Suspect]
     Indication: RENAL FAILURE CHRONIC
     Route: 033
     Dates: start: 2009
  4. DIANEAL LOW CALCIUM [Suspect]
     Route: 033
     Dates: start: 2009
  5. DIANEAL LOW CALCIUM [Suspect]
     Indication: RENAL FAILURE CHRONIC
     Route: 033
     Dates: start: 2009
  6. DIANEAL LOW CALCIUM [Suspect]
     Route: 033
     Dates: start: 2009
  7. DIANEAL LOW CALCIUM (ULTRABAG) [Suspect]
     Indication: RENAL FAILURE CHRONIC
     Route: 033
     Dates: start: 2009

REACTIONS (2)
  - Pharyngitis streptococcal [Not Recovered/Not Resolved]
  - Diarrhoea [Not Recovered/Not Resolved]
